FAERS Safety Report 9025117 (Version 1)
Quarter: 2013Q1

REPORT INFORMATION
  Report Type: Spontaneous
  Country: US (occurrence: US)
  Receive Date: 20130122
  Receipt Date: 20130122
  Transmission Date: 20140127
  Serious: Yes (Death)
  Sender: FDA-Public Use
  Company Number: US-NICOBRDEV-2013-00474

PATIENT
  Age: 53 Year
  Sex: Female

DRUGS (2)
  1. CLONAZEPAM [Suspect]
     Indication: PRODUCT USED FOR UNKNOWN INDICATION
     Dosage: UNK, UNKNOWN
     Route: 048
     Dates: end: 2011
  2. MORPHINE SULFATE [Suspect]
     Indication: PRODUCT USED FOR UNKNOWN INDICATION
     Dosage: UNK, UNKNOWN
     Route: 048
     Dates: end: 2011

REACTIONS (11)
  - Death [Fatal]
  - Abdominal pain [None]
  - Throat irritation [None]
  - Haematemesis [None]
  - Cardiac arrest [None]
  - Toxicologic test abnormal [None]
  - Dyspepsia [None]
  - International normalised ratio increased [None]
  - Prothrombin time prolonged [None]
  - Gastrointestinal injury [None]
  - Completed suicide [None]
